FAERS Safety Report 14259535 (Version 1)
Quarter: 2017Q4

REPORT INFORMATION
  Report Type: Spontaneous
  Country: US (occurrence: US)
  Receive Date: 20171207
  Receipt Date: 20171207
  Transmission Date: 20180321
  Serious: No
  Sender: FDA-Public Use
  Company Number: US-009507513-1711USA004922

PATIENT
  Age: 84 Year
  Sex: Male

DRUGS (4)
  1. NASACORT [Concomitant]
     Active Substance: TRIAMCINOLONE ACETONIDE
  2. MUCINEX [Concomitant]
     Active Substance: GUAIFENESIN
  3. DULERA [Suspect]
     Active Substance: FORMOTEROL FUMARATE DIHYDRATE\MOMETASONE FUROATE
     Indication: ACUTE SINUSITIS
     Dosage: 2 INHALATIONS (200 MCG/5 MCG) AM/PM
     Route: 055
  4. SINGULAIR [Concomitant]
     Active Substance: MONTELUKAST SODIUM

REACTIONS (6)
  - Dyspnoea [Recovered/Resolved]
  - Accidental underdose [Unknown]
  - Fatigue [Recovered/Resolved]
  - Product quality issue [Unknown]
  - Myalgia [Recovered/Resolved]
  - Product use in unapproved indication [Unknown]

NARRATIVE: CASE EVENT DATE: 20171020
